FAERS Safety Report 5367333-6 (Version None)
Quarter: 2007Q2

REPORT INFORMATION
  Report Type: 
  Country: None (occurrence: None)
  Receive Date: 20070622
  Receipt Date: 20060426
  Transmission Date: 20071010
  Serious: No
  Sender: FDA-Public Use
  Company Number: US-ASTRAZENECA-2006UW07657

PATIENT
  Age: 49 Year
  Sex: Female
  Weight: 56.7 kg

DRUGS (6)
  1. PULMICORT [Suspect]
     Indication: ASTHMA
     Route: 055
     Dates: start: 20051101
  2. SINGULAIR [Concomitant]
     Indication: ASTHMA
  3. ASPIRIN [Concomitant]
  4. CALCIUM WITH VITAMIN D [Concomitant]
  5. LOESTRIN [Concomitant]
  6. PRILOSEC OTC [Concomitant]
     Route: 048

REACTIONS (3)
  - CUSHINGOID [None]
  - INTRAOCULAR PRESSURE INCREASED [None]
  - WEIGHT INCREASED [None]
